FAERS Safety Report 25202755 (Version 1)
Quarter: 2025Q2

REPORT INFORMATION
  Report Type: Spontaneous
  Country: US (occurrence: US)
  Receive Date: 20250416
  Receipt Date: 20250416
  Transmission Date: 20250716
  Serious: Yes (Hospitalization, Other)
  Sender: ALEMBIC
  Company Number: US-ALEMBIC PHARMACUETICALS LIMITED-2025SCAL000339

PATIENT

DRUGS (2)
  1. FLUOROURACIL [Suspect]
     Active Substance: FLUOROURACIL
     Indication: Adenocarcinoma pancreas
     Route: 065
  2. IRINOTECAN HYDROCHLORIDE [Suspect]
     Active Substance: IRINOTECAN HYDROCHLORIDE
     Indication: Adenocarcinoma pancreas
     Route: 065

REACTIONS (9)
  - Pulmonary alveolar haemorrhage [Recovered/Resolved]
  - Pulmonary toxicity [Recovering/Resolving]
  - Hypoxia [Recovered/Resolved]
  - Lung opacity [Recovered/Resolved]
  - Pulmonary congestion [Unknown]
  - Respiratory failure [Recovering/Resolving]
  - Hypervolaemia [Recovering/Resolving]
  - Pneumonia [Recovering/Resolving]
  - Dyspnoea [Recovering/Resolving]
